FAERS Safety Report 9541616 (Version 1)
Quarter: 2013Q3

REPORT INFORMATION
  Report Type: Spontaneous
  Country: AR (occurrence: AR)
  Receive Date: 20130923
  Receipt Date: 20130923
  Transmission Date: 20140515
  Serious: Yes (Other)
  Sender: FDA-Public Use
  Company Number: AR-JNJFOC-20130907431

PATIENT
  Age: 37 Year
  Sex: Female
  Weight: 100 kg

DRUGS (7)
  1. INVEGA [Suspect]
     Indication: MENTAL DISORDER
     Route: 048
     Dates: start: 201308
  2. INVEGA [Suspect]
     Indication: MENTAL DISORDER
     Route: 048
     Dates: start: 201304, end: 201308
  3. INVEGA [Suspect]
     Indication: BIPOLAR DISORDER
     Route: 048
     Dates: start: 201304, end: 201308
  4. INVEGA [Suspect]
     Indication: BIPOLAR DISORDER
     Route: 048
     Dates: start: 201308
  5. LAMOTRIGINE [Suspect]
     Indication: PRODUCT USED FOR UNKNOWN INDICATION
     Route: 065
     Dates: start: 20130906
  6. RIVOTRIL [Concomitant]
     Route: 065
  7. NOZINAN [Concomitant]
     Indication: SLEEP DISORDER THERAPY
     Route: 065

REACTIONS (5)
  - Crying [Recovering/Resolving]
  - Nervousness [Recovering/Resolving]
  - Insomnia [Recovering/Resolving]
  - Wrong technique in drug usage process [Unknown]
  - Drug ineffective [Unknown]
